FAERS Safety Report 4374213-1 (Version None)
Quarter: 2004Q2

REPORT INFORMATION
  Report Type: 
  Country: None (occurrence: None)
  Receive Date: 20040603
  Receipt Date: 20040526
  Transmission Date: 20050107
  Serious: Yes (Other)
  Sender: FDA-Public Use
  Company Number: 2004-05-2251

PATIENT
  Age: 44 Year
  Sex: Female

DRUGS (4)
  1. AERIUM (DESLORATADINE) TABLETS  'LIKE CLARINEX' [Suspect]
     Indication: HYPERSENSITIVITY
     Dosage: 5 MG ORAL
     Route: 048
     Dates: start: 20040523, end: 20040524
  2. VENTOLIN [Concomitant]
  3. CLARITIN [Concomitant]
  4. KENACORT [Concomitant]

REACTIONS (9)
  - DRY MOUTH [None]
  - DYSPNOEA [None]
  - HEADACHE [None]
  - INCREASED BRONCHIAL SECRETION [None]
  - MALAISE [None]
  - PARAESTHESIA [None]
  - RALES [None]
  - THROAT IRRITATION [None]
  - THROAT TIGHTNESS [None]
